FAERS Safety Report 5239349-1 (Version None)
Quarter: 2007Q1

REPORT INFORMATION
  Report Type: 
  Country: None (occurrence: None)
  Receive Date: 20070216
  Receipt Date: 20070207
  Transmission Date: 20070707
  Serious: Yes (Hospitalization)
  Sender: FDA-Public Use
  Company Number: SE-JNJFOC-20070202267

PATIENT
  Age: 34 Year
  Sex: Female

DRUGS (8)
  1. REMICADE [Suspect]
     Route: 042
  2. REMICADE [Suspect]
     Indication: SPONDYLITIS
     Route: 042
  3. METHOTREXATE [Concomitant]
     Indication: SPONDYLITIS
     Dosage: 20-25 MG
     Route: 065
  4. FOLACIN [Concomitant]
     Route: 065
  5. IBUMETIN [Concomitant]
     Route: 065
  6. OMEPRAZOLE [Concomitant]
     Route: 065
  7. PANODIL [Concomitant]
     Route: 065
  8. NSAID [Concomitant]
     Route: 065

REACTIONS (6)
  - DIARRHOEA [None]
  - HEPATIC ENZYME INCREASED [None]
  - HEPATOCELLULAR DAMAGE [None]
  - HEPATOTOXICITY [None]
  - JAUNDICE [None]
  - NAUSEA [None]
